FAERS Safety Report 4677392-1 (Version None)
Quarter: 2005Q2

REPORT INFORMATION
  Report Type: 
  Country: None (occurrence: None)
  Receive Date: 20050526
  Receipt Date: 20050526
  Transmission Date: 20051028
  Serious: No
  Sender: FDA-Public Use
  Company Number: None

PATIENT
  Age: 81 Year
  Sex: Female
  Weight: 84.8226 kg

DRUGS (11)
  1. ALENDRONATE [Suspect]
     Indication: OSTEOPOROSIS
     Dosage: 70 MG Q WEEK
     Dates: start: 20011101, end: 20040601
  2. CALCIUM SUPP [Concomitant]
  3. DITIZEM [Concomitant]
  4. ARICEPT [Concomitant]
  5. AVAPRO [Concomitant]
  6. NITRO SL [Concomitant]
  7. PRILOSEC [Concomitant]
  8. ZOCOR [Concomitant]
  9. TOLERADINE [Concomitant]
  10. EFFEXOR [Concomitant]
  11. WARFARIN [Concomitant]

REACTIONS (2)
  - GASTROOESOPHAGEAL REFLUX DISEASE [None]
  - RADIUS FRACTURE [None]
